FAERS Safety Report 5863237-0 (Version None)
Quarter: 2008Q3

REPORT INFORMATION
  Report Type: 
  Country: None (occurrence: None)
  Receive Date: 20080828
  Receipt Date: 20080820
  Transmission Date: 20090109
  Serious: Yes (Hospitalization)
  Sender: FDA-Public Use
  Company Number: US-ABBOTT-08P-163-0471918-00

PATIENT
  Sex: Female
  Weight: 78.542 kg

DRUGS (8)
  1. HUMIRA [Suspect]
     Indication: RHEUMATOID ARTHRITIS
     Route: 050
     Dates: start: 20010101, end: 20080501
  2. METHOTREXATE [Concomitant]
     Indication: RHEUMATOID ARTHRITIS
     Route: 048
  3. CELECOXIB [Concomitant]
     Indication: PAIN
     Route: 048
  4. VALSARTAN [Concomitant]
     Indication: BLOOD PRESSURE
     Route: 048
  5. LABETALOL HCL [Concomitant]
     Indication: BLOOD PRESSURE
     Route: 048
  6. ATORVASTATIN CALCIUM [Concomitant]
     Indication: BLOOD CHOLESTEROL
     Route: 048
  7. METFORMIN HCL [Concomitant]
     Indication: DIABETES MELLITUS
     Dosage: 500MG/1GM
     Route: 048
  8. HYDROCODONE BITARTRATE [Concomitant]
     Indication: PAIN
     Route: 048

REACTIONS (3)
  - BLOOD GLUCOSE INCREASED [None]
  - KNEE OPERATION [None]
  - PAIN [None]
